FAERS Safety Report 15683653 (Version 2)
Quarter: 2018Q4

REPORT INFORMATION
  Report Type: Spontaneous
  Country: AU (occurrence: AU)
  Receive Date: 20181204
  Receipt Date: 20181229
  Transmission Date: 20190205
  Serious: Yes (Hospitalization)
  Sender: FDA-Public Use
  Company Number: AU-GW PHARMA-201810AUGW0504

PATIENT

DRUGS (5)
  1. TOPIRAMATE. [Concomitant]
     Active Substance: TOPIRAMATE
     Indication: SEIZURE
     Dosage: 25 MILLIGRAM, BID
     Route: 048
     Dates: start: 2018
  2. CLONAZEPAM. [Concomitant]
     Active Substance: CLONAZEPAM
     Indication: SEIZURE
     Dosage: 250 MICROGRAM, TID
     Route: 048
     Dates: start: 2018
  3. EPIDIOLEX [Suspect]
     Active Substance: CANNABIDIOL
     Indication: EPILEPTIC ENCEPHALOPATHY
     Dosage: 22MG/KG, 250.8 MILLIGRAM, QD
     Route: 048
     Dates: start: 20180806
  4. EPIDIOLEX [Suspect]
     Active Substance: CANNABIDIOL
     Indication: GENE MUTATION
  5. LEVETIRACETAM. [Concomitant]
     Active Substance: LEVETIRACETAM
     Indication: SEIZURE
     Dosage: 160 MILLIGRAM, BID
     Route: 048
     Dates: start: 2018

REACTIONS (1)
  - Seizure [Recovered/Resolved]

NARRATIVE: CASE EVENT DATE: 20181006
